FAERS Safety Report 6469121-6 (Version None)
Quarter: 2009Q4

REPORT INFORMATION
  Report Type: 
  Country: None (occurrence: None)
  Receive Date: 20091203
  Receipt Date: 20071002
  Transmission Date: 20100525
  Serious: Yes (Other)
  Sender: FDA-Public Use
  Company Number: IT-ELI_LILLY_AND_COMPANY-IT200703003893

PATIENT
  Sex: Male

DRUGS (5)
  1. OLANZAPINE [Suspect]
     Indication: PSYCHOTIC DISORDER
     Dosage: 2.5 MG, UNK
     Route: 048
     Dates: end: 20070125
  2. OLANZAPINE [Suspect]
     Dosage: 5 MG, DAILY (1/D)
     Dates: start: 20070126, end: 20070313
  3. OLANZAPINE [Suspect]
     Dosage: 5 MG, DAILY (1/D)
     Dates: start: 20070101
  4. ALPRAZOLAM [Concomitant]
     Dosage: 5 GTT, UNK
  5. CLOZAPINE [Concomitant]
     Indication: DELIRIUM
     Dosage: 25 MG, UNK
     Dates: start: 20060301, end: 20070118

REACTIONS (2)
  - LEUKOPENIA [None]
  - THROMBOCYTOPENIA [None]
